FAERS Safety Report 9523738 (Version 1)
Quarter: 2013Q3

REPORT INFORMATION
  Report Type: Spontaneous
  Country: PH (occurrence: PH)
  Receive Date: 20130914
  Receipt Date: 20130914
  Transmission Date: 20140515
  Serious: Yes (Life-Threatening)
  Sender: FDA-Public Use
  Company Number: PH-BRISTOL-MYERS SQUIBB COMPANY-19390921

PATIENT
  Age: 26 Year
  Sex: Female
  Weight: 120 kg

DRUGS (1)
  1. ABILIFY DISCMELT TABS 15MG [Suspect]
     Indication: ACUTE PSYCHOSIS
     Route: 048
     Dates: start: 20130825, end: 20130830

REACTIONS (4)
  - Neuroleptic malignant syndrome [Unknown]
  - Hypotension [Unknown]
  - Renal failure acute [Unknown]
  - Sepsis [Unknown]
